FAERS Safety Report 16837519 (Version 1)
Quarter: 2019Q3

REPORT INFORMATION
  Report Type: Spontaneous
  Country: CN (occurrence: CN)
  Receive Date: 20190923
  Receipt Date: 20190923
  Transmission Date: 20191005
  Serious: Yes (Hospitalization, Other)
  Sender: FDA-Public Use
  Company Number: CN-ASTRAZENECA-2019SE81855

PATIENT
  Age: 24330 Day
  Sex: Male
  Weight: 70 kg

DRUGS (2)
  1. BUDESONIDE. [Suspect]
     Active Substance: BUDESONIDE
     Indication: ASTHMA
     Route: 055
     Dates: start: 20190501, end: 20190505
  2. BUDESONIDE. [Suspect]
     Active Substance: BUDESONIDE
     Indication: COUGH
     Route: 055
     Dates: start: 20190501, end: 20190505

REACTIONS (2)
  - Asthma [Recovered/Resolved]
  - Chest discomfort [Recovered/Resolved]

NARRATIVE: CASE EVENT DATE: 20190505
